FAERS Safety Report 18784442 (Version 2)
Quarter: 2021Q1

REPORT INFORMATION
  Report Type: Spontaneous
  Country: US (occurrence: US)
  Receive Date: 20210125
  Receipt Date: 20210204
  Transmission Date: 20210419
  Serious: No
  Sender: FDA-Public Use
  Company Number: US-PFIZER INC-2021045499

PATIENT
  Age: 29 Year
  Sex: Female

DRUGS (2)
  1. NOVOCAIN [Suspect]
     Active Substance: PROCAINE HYDROCHLORIDE
     Indication: HYPOAESTHESIA ORAL
     Dosage: UNK
     Dates: start: 1976
  2. EPINEPHRINE. [Suspect]
     Active Substance: EPINEPHRINE
     Indication: ANAESTHESIA ORAL
     Dosage: UNK
     Dates: start: 1976

REACTIONS (1)
  - Feeling abnormal [Recovered/Resolved]

NARRATIVE: CASE EVENT DATE: 1976
